FAERS Safety Report 12304605 (Version 1)
Quarter: 2016Q2

REPORT INFORMATION
  Report Type: Spontaneous
  Country: US (occurrence: None)
  Receive Date: 20160425
  Receipt Date: 20160425
  Transmission Date: 20160815
  Serious: Yes (Hospitalization)
  Sender: FDA-Public Use
  Company Number: None

PATIENT
  Age: 81 Year
  Sex: Male

DRUGS (1)
  1. NEXAVAR [Suspect]
     Active Substance: SORAFENIB
     Indication: NEOPLASM MALIGNANT
     Dosage: 2 TABLETS TWICE DAILY BY MOUTH
     Route: 048
     Dates: start: 20160304, end: 20160418

REACTIONS (3)
  - Therapy cessation [None]
  - Nausea [None]
  - Eating disorder [None]

NARRATIVE: CASE EVENT DATE: 20160418
